FAERS Safety Report 7974398-1 (Version None)
Quarter: 2011Q4

REPORT INFORMATION
  Report Type: 
  Country: None (occurrence: None)
  Receive Date: 20111213
  Receipt Date: 20111202
  Transmission Date: 20120403
  Serious: Yes (Hospitalization)
  Sender: FDA-Public Use
  Company Number: US-BAYER-2011-037979

PATIENT
  Age: 23 Year
  Sex: Female
  Weight: 108.84 kg

DRUGS (16)
  1. IBUPROFEN (ADVIL) [Concomitant]
  2. LORAZEPAM [Concomitant]
  3. PREDNISONE TAB [Concomitant]
  4. PROPOXYPHENE NAPSYLATE W/ ACETAMINOPHEN [Concomitant]
  5. MOTRIN [Concomitant]
  6. MAXALT [Concomitant]
     Dosage: 5 MG, PRN
     Route: 048
  7. AMOXICILLIN [Concomitant]
  8. CHERATUSSIN [AMMONIUM CHLORIDE,DEXTROMETHORPHAN HYDROBROMIDE,SODIU [Concomitant]
  9. ZOLPIDEM [Concomitant]
     Dosage: UNK
     Dates: start: 20081001, end: 20100401
  10. AMITRIPTYLINE HCL [Concomitant]
  11. YAZ [Suspect]
     Indication: CONTRACEPTION
     Dosage: UNK
     Route: 048
     Dates: start: 20081001, end: 20090701
  12. OXYCODONE HCL AND ACETAMINOPHEN [Concomitant]
  13. DROSPIRENONE AND ETHINYL ESTRADIOL [Suspect]
     Indication: CONTRACEPTION
     Dosage: UNK
     Route: 048
     Dates: start: 20090825, end: 20091017
  14. SERTRALINE HYDROCHLORIDE [Concomitant]
  15. TRAMADOL HCL [Concomitant]
  16. CYCLOBENZAPRINE [Concomitant]
     Dosage: 10 MG, BID
     Route: 048

REACTIONS (4)
  - PULMONARY EMBOLISM [None]
  - DEEP VEIN THROMBOSIS [None]
  - PAIN [None]
  - INJURY [None]
